FAERS Safety Report 19417645 (Version 1)
Quarter: 2021Q2

REPORT INFORMATION
  Report Type: Spontaneous
  Country: CA (occurrence: CA)
  Receive Date: 20210615
  Receipt Date: 20210615
  Transmission Date: 20210717
  Serious: Yes (Hospitalization)
  Sender: FDA-Public Use
  Company Number: CA-TOLMAR, INC.-2014CA002084

PATIENT
  Age: 63 Year
  Sex: Male

DRUGS (3)
  1. ELIGARD [Suspect]
     Active Substance: LEUPROLIDE ACETATE
     Indication: PROSTATE CANCER
     Dosage: 22.5 MG, UNK
     Dates: start: 20050926, end: 20131210
  2. DOCETAXEL. [Suspect]
     Active Substance: DOCETAXEL
     Indication: PRODUCT USED FOR UNKNOWN INDICATION
     Dosage: UNK
  3. DECADRON [Suspect]
     Active Substance: DEXAMETHASONE
     Indication: PRODUCT USED FOR UNKNOWN INDICATION
     Dosage: UNK

REACTIONS (1)
  - Functional gastrointestinal disorder [Recovering/Resolving]

NARRATIVE: CASE EVENT DATE: 20140220
